FAERS Safety Report 11415139 (Version 1)
Quarter: 2015Q3

REPORT INFORMATION
  Report Type: Spontaneous
  Country: IT (occurrence: IT)
  Receive Date: 20150825
  Receipt Date: 20150825
  Transmission Date: 20151125
  Serious: Yes (Death)
  Sender: FDA-Public Use
  Company Number: IT-TEVA-588516ISR

PATIENT
  Age: 79 Year
  Sex: Female

DRUGS (4)
  1. PREDNISONE. [Suspect]
     Active Substance: PREDNISONE
     Dosage: 40 MG/M2 PER DAY ON DAYS 1 TO 5
     Route: 048
  2. RITUXIMAB [Suspect]
     Active Substance: RITUXIMAB
     Dosage: 375 MG/M2 ON DAY 8 OF THE FIRST CYCLE
     Route: 048
  3. VINCRISTINE [Suspect]
     Active Substance: VINCRISTINE
     Dosage: 2MG ON DAY 1
     Route: 065
  4. CYCLOPHOSPHAMIDE. [Suspect]
     Active Substance: CYCLOPHOSPHAMIDE
     Dosage: 750 MG/M2 ON DAY 1
     Route: 065

REACTIONS (3)
  - Pseudomonas infection [Fatal]
  - Sepsis [Fatal]
  - Haematotoxicity [Unknown]
